FAERS Safety Report 5154892-1 (Version None)
Quarter: 2006Q4

REPORT INFORMATION
  Report Type: 
  Country: None (occurrence: None)
  Receive Date: 20061121
  Receipt Date: 20050930
  Transmission Date: 20070319
  Serious: Yes (Life-Threatening, Hospitalization)
  Sender: FDA-Public Use
  Company Number: ZA-BRISTOL-MYERS SQUIBB COMPANY-13131628

PATIENT
  Age: 56 Year
  Sex: Male
  Weight: 92 kg

DRUGS (6)
  1. CETUXIMAB [Suspect]
     Indication: COLORECTAL CANCER METASTATIC
     Route: 041
     Dates: start: 20050928, end: 20050928
  2. ATROPINE [Suspect]
     Indication: PREMEDICATION
     Dates: start: 20050928
  3. ADALAT [Concomitant]
     Indication: HYPERTENSION
     Dates: start: 19900101
  4. PERINDOPRIL ERBUMINE [Concomitant]
     Indication: HYPERTENSION
     Dates: start: 19900101
  5. PHENERGAN [Concomitant]
  6. THEOPHYLLINE [Concomitant]
     Indication: CHRONIC OBSTRUCTIVE PULMONARY DISEASE

REACTIONS (2)
  - CARDIAC FAILURE [None]
  - CIRCULATORY COLLAPSE [None]
